FAERS Safety Report 16757378 (Version 1)
Quarter: 2019Q3

REPORT INFORMATION
  Report Type: Spontaneous
  Country: GB (occurrence: GB)
  Receive Date: 20190829
  Receipt Date: 20190829
  Transmission Date: 20191005
  Serious: Yes (Hospitalization)
  Sender: FDA-Public Use
  Company Number: GB-009507513-1908GBR010257

PATIENT
  Age: 84 Year
  Sex: Female
  Weight: 63.5 kg

DRUGS (5)
  1. SITAGLIPTIN PHOSPHATE [Suspect]
     Active Substance: SITAGLIPTIN PHOSPHATE
     Indication: TYPE 2 DIABETES MELLITUS
     Dosage: 100 MILLIGRAM, QD
     Route: 048
     Dates: start: 2017
  2. GLIMEPIRIDE. [Suspect]
     Active Substance: GLIMEPIRIDE
     Indication: TYPE 2 DIABETES MELLITUS
     Dosage: 2 MILLIGRAM, QD
     Route: 048
     Dates: start: 2017
  3. ACIDEX (CALCIUM CARBONATE (+) SODIUM ALGINATE (+) SODIUM BICARBONATE) [Concomitant]
     Active Substance: CALCIUM CARBONATE\SODIUM ALGINATE\SODIUM BICARBONATE
  4. ALENDRONATE SODIUM. [Suspect]
     Active Substance: ALENDRONATE SODIUM
     Indication: OSTEOPOROSIS
     Dosage: 70 MILLIGRAM, QW
     Route: 048
     Dates: start: 2005, end: 2017
  5. GLUCOPHAGE [Suspect]
     Active Substance: METFORMIN HYDROCHLORIDE
     Indication: TYPE 2 DIABETES MELLITUS
     Dosage: 1500 MILLIGRAM, QD
     Route: 048
     Dates: start: 2016

REACTIONS (6)
  - Dysphagia [Not Recovered/Not Resolved]
  - Fatigue [Unknown]
  - Dyspnoea [Not Recovered/Not Resolved]
  - Idiopathic pulmonary fibrosis [Not Recovered/Not Resolved]
  - Tachycardia [Unknown]
  - Gastrooesophageal reflux disease [Not Recovered/Not Resolved]

NARRATIVE: CASE EVENT DATE: 201901
